FAERS Safety Report 6438864-2 (Version None)
Quarter: 2009Q4

REPORT INFORMATION
  Report Type: 
  Country: None (occurrence: None)
  Receive Date: 20091111
  Receipt Date: 20091111
  Transmission Date: 20100525
  Serious: Yes (Hospitalization)
  Sender: FDA-Public Use
  Company Number: None

PATIENT
  Sex: Male
  Weight: 75.2971 kg

DRUGS (9)
  1. YONDELIS [Suspect]
     Indication: GRANULAR CELL TUMOUR
     Dosage: 1.5 MG/M2 IV Q21DAYS
     Route: 042
     Dates: start: 20090929, end: 20091020
  2. COUMADIN [Concomitant]
  3. IBUPROFIN PRN [Concomitant]
  4. MULTI-VITAMIN [Concomitant]
  5. GINGER ROOT [Concomitant]
  6. CO-Q10 [Concomitant]
  7. CAT'S CLAW [Concomitant]
  8. ESTER-C [Concomitant]
  9. ECHINACEA [Concomitant]

REACTIONS (1)
  - TUMOUR PAIN [None]
